FAERS Safety Report 12341783 (Version 1)
Quarter: 2016Q2

REPORT INFORMATION
  Report Type: Report from Study
  Country: ES (occurrence: ES)
  Receive Date: 20160506
  Receipt Date: 20160506
  Transmission Date: 20160815
  Serious: Yes (Hospitalization)
  Sender: FDA-Public Use
  Company Number: ES-CELGENEUS-ESP-2016046262

PATIENT
  Age: 66 Year
  Sex: Male
  Weight: 66 kg

DRUGS (4)
  1. RED BLOOD CELLS [Concomitant]
     Active Substance: HUMAN RED BLOOD CELL
     Indication: NEUTROPENIA
     Dosage: 6 MILLIGRAM/MILLILITERS
     Route: 041
     Dates: start: 20160419, end: 20160419
  2. CARBOPLATIN. [Suspect]
     Active Substance: CARBOPLATIN
     Indication: NON-SMALL CELL LUNG CANCER
     Route: 041
     Dates: start: 20160329, end: 20160411
  3. ABRAXANE [Suspect]
     Active Substance: PACLITAXEL
     Indication: NON-SMALL CELL LUNG CANCER
     Dosage: 100 MILLIGRAM/SQ. METER
     Route: 041
     Dates: start: 20160329, end: 20160411
  4. FILGASTRIN [Concomitant]
     Indication: NEUTROPENIA
     Dosage: 30 MV
     Route: 058
     Dates: start: 20160419, end: 20160419

REACTIONS (2)
  - Cardiac failure [Not Recovered/Not Resolved]
  - Respiratory failure [Not Recovered/Not Resolved]

NARRATIVE: CASE EVENT DATE: 20160421
